FAERS Safety Report 7446140-4 (Version None)
Quarter: 2011Q2

REPORT INFORMATION
  Report Type: 
  Country: None (occurrence: None)
  Receive Date: 20110429
  Receipt Date: 20110421
  Transmission Date: 20111010
  Serious: Yes (Other)
  Sender: FDA-Public Use
  Company Number: B0707276A

PATIENT
  Sex: Male

DRUGS (1)
  1. REVOLADE [Suspect]
     Indication: IDIOPATHIC THROMBOCYTOPENIC PURPURA
     Dosage: 12.5MG PER DAY
     Route: 048
     Dates: start: 20110304

REACTIONS (4)
  - PLATELET COUNT INCREASED [None]
  - BLOOD BILIRUBIN INCREASED [None]
  - MALAISE [None]
  - HEPATIC FUNCTION ABNORMAL [None]
